FAERS Safety Report 13521554 (Version 1)
Quarter: 2017Q2

REPORT INFORMATION
  Report Type: Spontaneous
  Country: US (occurrence: US)
  Receive Date: 20170506
  Receipt Date: 20170506
  Transmission Date: 20170830
  Serious: No
  Sender: FDA-Public Use
  Company Number: None

PATIENT
  Age: 60 Year
  Sex: Male
  Weight: 63.45 kg

DRUGS (4)
  1. VITAMIN D [Concomitant]
     Active Substance: CHOLECALCIFEROL
  2. COMPLETE CARE TARTAR CONTROL PLUS WHITENING BAKING SODA AND PEROXIDE [Suspect]
     Active Substance: SODIUM FLUORIDE
     Indication: DENTAL CARE
     Route: 061
     Dates: start: 20161030, end: 20170422
  3. TRADITIONAL CHINESE HERBS [Concomitant]
  4. ROSUVASTATIN. [Concomitant]
     Active Substance: ROSUVASTATIN

REACTIONS (1)
  - Tongue discomfort [None]

NARRATIVE: CASE EVENT DATE: 20170301
